FAERS Safety Report 13942600 (Version 2)
Quarter: 2017Q3

REPORT INFORMATION
  Report Type: Spontaneous
  Country: US (occurrence: US)
  Receive Date: 20170907
  Receipt Date: 20170907
  Transmission Date: 20171127
  Serious: Yes (Hospitalization)
  Sender: FDA-Public Use
  Company Number: US-CELGENEUS-USA-20170809336

PATIENT
  Age: 58 Year
  Sex: Female
  Weight: 88.98 kg

DRUGS (1)
  1. POMALYST [Suspect]
     Active Substance: POMALIDOMIDE
     Indication: PLASMA CELL MYELOMA
     Dosage: 4 MILLIGRAM
     Route: 048
     Dates: start: 201707

REACTIONS (4)
  - Pulmonary oedema [Unknown]
  - Upper respiratory tract infection [Unknown]
  - Pulmonary thrombosis [Unknown]
  - Haematoma [Unknown]

NARRATIVE: CASE EVENT DATE: 201708
